FAERS Safety Report 5423728-3 (Version None)
Quarter: 2007Q3

REPORT INFORMATION
  Report Type: 
  Country: None (occurrence: None)
  Receive Date: 20070727
  Receipt Date: 20040525
  Transmission Date: 20080115
  Serious: Yes (Hospitalization)
  Sender: FDA-Public Use
  Company Number: THYM-10174

PATIENT
  Age: 53 Year
  Sex: Male
  Weight: 81.8 kg

DRUGS (14)
  1. THYMOGLOBULIN [Suspect]
     Indication: RENAL TRANSPLANT
     Dosage: 125 MG QD
     Dates: start: 20031113, end: 20031116
  2. ASPIRIN [Concomitant]
  3. CELLCEPT [Concomitant]
  4. INSULIN [Concomitant]
  5. ACYCLOVIR [Concomitant]
  6. ALLOPURINOL [Concomitant]
  7. CELEXA [Concomitant]
  8. PLAVIX [Concomitant]
  9. SENOKOT [Concomitant]
  10. FAMOTIDINE [Concomitant]
  11. NYSTATIN [Concomitant]
  12. PREDNISONE [Concomitant]
  13. ZOCOR [Concomitant]
  14. PROGRAF [Concomitant]

REACTIONS (3)
  - FOOT AMPUTATION [None]
  - LEG AMPUTATION [None]
  - VASCULAR INSUFFICIENCY [None]
